FAERS Safety Report 25600327 (Version 2)
Quarter: 2025Q3

REPORT INFORMATION
  Report Type: Report from Study
  Country: US (occurrence: US)
  Receive Date: 20250724
  Receipt Date: 20250819
  Transmission Date: 20251021
  Serious: No
  Sender: JOHNSON AND JOHNSON
  Company Number: US-JNJFOC-20250721163

PATIENT
  Age: 56 Year
  Sex: Female

DRUGS (1)
  1. GUSELKUMAB [Suspect]
     Active Substance: GUSELKUMAB
     Indication: Psoriasis
     Route: 065

REACTIONS (5)
  - Product dose omission issue [Unknown]
  - Injection site haemorrhage [Unknown]
  - Needle issue [Unknown]
  - Device use error [Unknown]
  - Product use complaint [Unknown]

NARRATIVE: CASE EVENT DATE: 20250715
